FAERS Safety Report 8511151-4 (Version None)
Quarter: 2012Q3

REPORT INFORMATION
  Report Type: 
  Country: None (occurrence: None)
  Receive Date: 20120716
  Receipt Date: 20120712
  Transmission Date: 20120928
  Serious: Yes (Hospitalization, Other)
  Sender: FDA-Public Use
  Company Number: US-AMGEN-USASP2012040618

PATIENT
  Age: 55 Year
  Sex: Female

DRUGS (2)
  1. ENBREL [Suspect]
     Indication: RHEUMATOID ARTHRITIS
     Dosage: 25 MG, 2 TIMES/WK
     Dates: start: 20060301
  2. ARAVA [Concomitant]
     Dosage: 1 MG, UNK
     Dates: start: 20100101

REACTIONS (4)
  - NEUROPATHY PERIPHERAL [None]
  - FALL [None]
  - INJECTION SITE PAIN [None]
  - BREAST CANCER [None]
